FAERS Safety Report 10920094 (Version 2)
Quarter: 2015Q3

REPORT INFORMATION
  Report Type: Spontaneous
  Country: IT (occurrence: IT)
  Receive Date: 20150317
  Receipt Date: 20150715
  Transmission Date: 20151125
  Serious: Yes (Hospitalization, Other)
  Sender: FDA-Public Use
  Company Number: IT-AUROBINDO-AUR-APL-2015-02237

PATIENT
  Age: 76 Year
  Sex: Female

DRUGS (3)
  1. CLENIL                             /00212602/ [Concomitant]
     Indication: PRODUCT USED FOR UNKNOWN INDICATION
     Dosage: 1 DF, UNK
  2. BRONCOVALEAS                       /00139501/ [Suspect]
     Active Substance: ALBUTEROL
     Indication: LUNG INFECTION
     Dosage: 15 GTT, CYCLICAL
     Dates: start: 20150224, end: 20150224
  3. LEVOFLOXACIN. [Suspect]
     Active Substance: LEVOFLOXACIN
     Indication: PNEUMONIA
     Dosage: 750 MG, TOTAL
     Route: 048
     Dates: start: 20150224, end: 20150224

REACTIONS (6)
  - Tremor [Recovering/Resolving]
  - Syncope [Recovering/Resolving]
  - Hypotension [Recovering/Resolving]
  - Erythema [Recovering/Resolving]
  - Drug hypersensitivity [Recovering/Resolving]
  - Pruritus [Recovering/Resolving]

NARRATIVE: CASE EVENT DATE: 20150224
